FAERS Safety Report 7091327-6 (Version None)
Quarter: 2010Q4

REPORT INFORMATION
  Report Type: 
  Country: None (occurrence: None)
  Receive Date: 20101109
  Receipt Date: 20101104
  Transmission Date: 20110411
  Serious: Yes (Life-Threatening)
  Sender: FDA-Public Use
  Company Number: A0698893A

PATIENT
  Age: 59 Year
  Sex: Female
  Weight: 105.5 kg

DRUGS (2)
  1. AVANDIA [Suspect]
     Indication: BLOOD PRESSURE
     Dosage: 4MG PER DAY
     Route: 065
     Dates: start: 19990101, end: 20070503
  2. METFORMIN [Concomitant]
     Dates: start: 20020601, end: 20080601

REACTIONS (4)
  - ANXIETY [None]
  - CEREBROVASCULAR ACCIDENT [None]
  - MYOCARDIAL INFARCTION [None]
  - PAIN [None]
